FAERS Safety Report 10404710 (Version 1)
Quarter: 2014Q3

REPORT INFORMATION
  Report Type: Spontaneous
  Country: US (occurrence: US)
  Receive Date: 20140824
  Receipt Date: 20140824
  Transmission Date: 20150326
  Serious: No
  Sender: FDA-Public Use
  Company Number: US-BAUSCH-SYM-2013-10537

PATIENT
  Sex: Female

DRUGS (1)
  1. ZOVIRAX [Suspect]
     Active Substance: ACYCLOVIR
     Indication: ORAL HERPES
     Dosage: APPLIED 5 TIMES DAILY
     Route: 061
     Dates: start: 201211

REACTIONS (2)
  - Application site pain [Unknown]
  - Application site scar [Not Recovered/Not Resolved]
